FAERS Safety Report 5762425-1 (Version None)
Quarter: 2008Q2

REPORT INFORMATION
  Report Type: 
  Country: None (occurrence: None)
  Receive Date: 20080609
  Receipt Date: 20080602
  Transmission Date: 20081010
  Serious: Yes (Other)
  Sender: FDA-Public Use
  Company Number: US-JNJFOC-20080600984

PATIENT
  Age: 62 Year
  Sex: Male
  Weight: 95.26 kg

DRUGS (7)
  1. INVEGA [Suspect]
     Indication: SCHIZOPHRENIA
     Route: 048
  2. INVEGA [Suspect]
     Indication: DEPRESSION
     Route: 048
  3. LIPITOR [Concomitant]
     Route: 048
  4. FLUOXETINE HCL [Concomitant]
     Indication: DEPRESSION
     Route: 048
  5. UROXATRAL [Concomitant]
     Indication: PROSTATIC DISORDER
     Route: 048
  6. MULTIVITAMIN [Concomitant]
     Indication: VITAMIN SUPPLEMENTATION
     Route: 048
  7. PROTONIX [Concomitant]
     Indication: DYSPHAGIA
     Route: 048

REACTIONS (2)
  - DYSPHAGIA [None]
  - SYNCOPE [None]
